FAERS Safety Report 16276081 (Version 2)
Quarter: 2019Q2

REPORT INFORMATION
  Report Type: Spontaneous
  Country: US (occurrence: US)
  Receive Date: 20190506
  Receipt Date: 20190619
  Transmission Date: 20190711
  Serious: No
  Sender: FDA-Public Use
  Company Number: US-SA-2019SA120654

PATIENT
  Age: 40 Year
  Sex: Male
  Weight: 101.13 kg

DRUGS (1)
  1. DUPIXENT [Suspect]
     Active Substance: DUPILUMAB
     Indication: ASTHMA
     Dosage: UNK UNK, UNK
     Dates: start: 201902

REACTIONS (6)
  - Hyperaesthesia [Unknown]
  - Axillary pain [Unknown]
  - Chest pain [Unknown]
  - Rash [Unknown]
  - Erythema [Unknown]
  - Herpes zoster [Unknown]

NARRATIVE: CASE EVENT DATE: 201902
